FAERS Safety Report 23861257 (Version 1)
Quarter: 2024Q2

REPORT INFORMATION
  Report Type: Spontaneous
  Country: US (occurrence: US)
  Receive Date: 20240516
  Receipt Date: 20240516
  Transmission Date: 20240716
  Serious: Yes (Other)
  Sender: FDA-Public Use
  Company Number: US-002147023-NVSC2024US100419

PATIENT
  Age: 43 Year
  Sex: Male

DRUGS (1)
  1. VALSARTAN [Suspect]
     Active Substance: VALSARTAN
     Indication: Product used for unknown indication
     Dosage: UNK
     Route: 065

REACTIONS (8)
  - Chronic kidney disease [Unknown]
  - Influenza [Unknown]
  - Nasopharyngitis [Unknown]
  - Urine abnormality [Unknown]
  - Limb discomfort [Unknown]
  - Periorbital swelling [Unknown]
  - Wrong technique in product usage process [Unknown]
  - Incorrect dosage administered [Unknown]
